FAERS Safety Report 16024539 (Version 2)
Quarter: 2020Q4

REPORT INFORMATION
  Report Type: Spontaneous
  Country: BE (occurrence: BE)
  Receive Date: 20190301
  Receipt Date: 20201125
  Transmission Date: 20210113
  Serious: Yes (Other)
  Sender: FDA-Public Use
  Company Number: BE-JNJFOC-20190225075

PATIENT
  Age: 51 Year
  Sex: Female

DRUGS (11)
  1. SIMVASTATIN. [Concomitant]
     Active Substance: SIMVASTATIN
  2. INSULIN [Concomitant]
     Active Substance: INSULIN NOS
  3. COVERAM [Concomitant]
     Active Substance: AMLODIPINE\PERINDOPRIL
  4. RIVOTRIL [Concomitant]
     Active Substance: CLONAZEPAM
  5. DUSPATALIN [Concomitant]
     Active Substance: MEBEVERINE
  6. TRAZOLAN [Concomitant]
     Active Substance: TRAZODONE HYDROCHLORIDE
  7. TREMFYA [Suspect]
     Active Substance: GUSELKUMAB
     Indication: PRODUCT USED FOR UNKNOWN INDICATION
     Route: 058
  8. ASAFLOW [Concomitant]
     Active Substance: ASPIRIN
  9. TREMFYA [Suspect]
     Active Substance: GUSELKUMAB
  10. INSULIN RAPID [Concomitant]
     Active Substance: INSULIN NOS
  11. SIPRALEXA [Concomitant]
     Active Substance: ESCITALOPRAM OXALATE

REACTIONS (1)
  - Hyperglycaemia [Unknown]
